FAERS Safety Report 10284870 (Version 3)
Quarter: 2015Q1

REPORT INFORMATION
  Report Type: Spontaneous
  Country: GB (occurrence: GB)
  Receive Date: 20140708
  Receipt Date: 20150302
  Transmission Date: 20150720
  Serious: Yes (Death, Other)
  Sender: FDA-Public Use
  Company Number: GB-TEVA-492476ISR

PATIENT
  Age: 27 Year
  Sex: Female

DRUGS (9)
  1. CO-AMOXICLAV [Concomitant]
     Active Substance: AMOXICILLIN\CLAVULANIC ACID
     Indication: UPPER RESPIRATORY TRACT INFECTION
  2. HALOPERIDOL. [Suspect]
     Active Substance: HALOPERIDOL
     Indication: PSYCHOTIC BEHAVIOUR
     Dates: start: 20130103, end: 20130103
  3. DIAZEPAM. [Concomitant]
     Active Substance: DIAZEPAM
     Indication: AGITATION
  4. LORAZEPAM. [Concomitant]
     Active Substance: LORAZEPAM
     Indication: ANXIETY
     Dosage: UP TO 4MG DAILY AS NEEDED
  5. HYOSCINE HYDROBROMIDE [Concomitant]
     Active Substance: SCOPOLAMINE
     Indication: SALIVARY HYPERSECRETION
     Dosage: 300 MILLIGRAM DAILY; TAKEN AT NIGHT.
  6. PROCYCLIDINE [Suspect]
     Active Substance: PROCYCLIDINE
     Indication: EXTRAPYRAMIDAL DISORDER
     Dosage: AS REQUIRED 5 -30MG PERDAY VARIED BETWEEN 10 AND 20MG DAILY
     Route: 048
     Dates: start: 20130112, end: 20130116
  7. IBUPROFEN. [Concomitant]
     Active Substance: IBUPROFEN
     Indication: PAIN
     Dosage: 1200 MILLIGRAM DAILY;
  8. PARACETAMOL [Concomitant]
     Active Substance: ACETAMINOPHEN
     Route: 048
  9. HALOPERIDOL. [Suspect]
     Active Substance: HALOPERIDOL
     Dosage: VARIED BETWEEN 5MG THREE TIMES A DAY AND 3MG THREE TIMES A DAY PLUS AS NEEDED.
     Route: 048
     Dates: end: 20130117

REACTIONS (6)
  - Complex partial seizures [Not Recovered/Not Resolved]
  - Tachycardia [Not Recovered/Not Resolved]
  - Sudden cardiac death [Fatal]
  - Neuroleptic malignant syndrome [Not Recovered/Not Resolved]
  - Encephalitis [Not Recovered/Not Resolved]
  - Body temperature fluctuation [Not Recovered/Not Resolved]

NARRATIVE: CASE EVENT DATE: 20130112
